FAERS Safety Report 4764159-9 (Version None)
Quarter: 2005Q3

REPORT INFORMATION
  Report Type: 
  Country: None (occurrence: None)
  Receive Date: 20050906
  Receipt Date: 20050627
  Transmission Date: 20060218
  Serious: No
  Sender: FDA-Public Use
  Company Number: 2005-BP-10874BP

PATIENT
  Sex: Male

DRUGS (8)
  1. SPIRIVA [Suspect]
     Indication: CHRONIC OBSTRUCTIVE PULMONARY DISEASE
     Dosage: 18 MCG (18 MCG, QD), IH
     Route: 055
     Dates: start: 20050614
  2. ATENOLOL [Concomitant]
  3. LOVASTATIN [Concomitant]
  4. FLUOXETINE [Concomitant]
  5. OCUVITE (OCUVITE) [Concomitant]
  6. VITAMIN E [Concomitant]
  7. VITAMIN C (ASCORBIC ACID) [Concomitant]
  8. PREDNISONE LOTION (PREDNISONE) [Concomitant]

REACTIONS (1)
  - CHROMATURIA [None]
